FAERS Safety Report 24022498 (Version 1)
Quarter: 2024Q2

REPORT INFORMATION
  Report Type: Report from Study
  Country: MX (occurrence: MX)
  Receive Date: 20240627
  Receipt Date: 20240627
  Transmission Date: 20240716
  Serious: No
  Sender: FDA-Public Use
  Company Number: MX-ROCHE-3390492

PATIENT
  Sex: Female

DRUGS (1)
  1. ALECTINIB [Suspect]
     Active Substance: ALECTINIB
     Indication: Lung neoplasm malignant
     Dosage: 150 MG
     Route: 048
     Dates: start: 20200320

REACTIONS (4)
  - Tooth fracture [Unknown]
  - Speech disorder [Unknown]
  - Injury [Unknown]
  - Tooth injury [Unknown]
